FAERS Safety Report 25741621 (Version 1)
Quarter: 2025Q3

REPORT INFORMATION
  Report Type: Spontaneous
  Country: US (occurrence: None)
  Receive Date: 20250829
  Receipt Date: 20250829
  Transmission Date: 20251021
  Serious: No
  Sender: FDA-CTU
  Company Number: None

PATIENT
  Age: 71 Year
  Sex: Female
  Weight: 104.33 kg

DRUGS (1)
  1. ADBRY [Suspect]
     Active Substance: TRALOKINUMAB-LDRM
     Indication: Dermatitis atopic
     Dosage: INJECT 300MG (1 PEN)  SUBCUTANEOUSLY EVERY OTHER  WEEK STARTING ON DAY 15  AS DIRECTED.
     Route: 058
     Dates: start: 202508

REACTIONS (1)
  - Cardiac disorder [None]
